FAERS Safety Report 6661184-8 (Version None)
Quarter: 2010Q1

REPORT INFORMATION
  Report Type: 
  Country: None (occurrence: None)
  Receive Date: 20100331
  Receipt Date: 20100323
  Transmission Date: 20100710
  Serious: Yes (Hospitalization)
  Sender: FDA-Public Use
  Company Number: B0634929A

PATIENT
  Sex: Female
  Weight: 58 kg

DRUGS (6)
  1. LAPATINIB [Suspect]
     Dosage: 1250MG PER DAY
     Route: 048
     Dates: start: 20100114
  2. TAXOTERE [Suspect]
     Dosage: 119.25MG PER DAY
     Route: 042
     Dates: start: 20100114
  3. SEROPLEX [Concomitant]
     Indication: ANXIETY
     Route: 048
  4. STILNOX [Concomitant]
     Indication: ANXIETY
     Route: 048
  5. IMODIUM [Concomitant]
     Indication: CONSTIPATION
     Route: 048
  6. UNKNOWN DRUG [Concomitant]
     Indication: ANXIETY
     Route: 048

REACTIONS (4)
  - DIARRHOEA [None]
  - FEBRILE NEUTROPENIA [None]
  - NEUTROPENIA [None]
  - STOMATITIS [None]
